FAERS Safety Report 23149402 (Version 1)
Quarter: 2023Q4

REPORT INFORMATION
  Report Type: Spontaneous
  Country: US (occurrence: None)
  Receive Date: 20231104
  Receipt Date: 20231104
  Transmission Date: 20240110
  Serious: No
  Sender: FDA-Public Use
  Company Number: None

PATIENT
  Age: 51 Year
  Sex: Male
  Weight: 97 kg

DRUGS (7)
  1. CYCLOPHOSPHAMIDE [Suspect]
     Active Substance: CYCLOPHOSPHAMIDE
     Dates: end: 20231002
  2. CYTARABINE [Suspect]
     Active Substance: CYTARABINE
     Dates: end: 20230929
  3. SPRYCEL [Suspect]
     Active Substance: DASATINIB
     Dates: end: 20231006
  4. DEXAMETHASONE [Suspect]
     Active Substance: DEXAMETHASONE
     Dates: end: 20231002
  5. DOXORUBICIN HYDROCHLORIDE [Suspect]
     Active Substance: DOXORUBICIN HYDROCHLORIDE
     Dates: end: 20231002
  6. METHOTREXATE [Suspect]
     Active Substance: METHOTREXATE
     Dates: end: 20231006
  7. VINCRISTINE SULFATE [Suspect]
     Active Substance: VINCRISTINE SULFATE
     Dates: end: 20231002

REACTIONS (2)
  - Anaemia [None]
  - White blood cell count decreased [None]

NARRATIVE: CASE EVENT DATE: 20231006
